FAERS Safety Report 19009108 (Version 1)
Quarter: 2021Q1

REPORT INFORMATION
  Report Type: Spontaneous
  Country: SI (occurrence: SI)
  Receive Date: 20210316
  Receipt Date: 20210316
  Transmission Date: 20210420
  Serious: Yes (Other)
  Sender: FDA-Public Use
  Company Number: ALC2021SI001822

PATIENT

DRUGS (3)
  1. MYDRIACYL [Suspect]
     Active Substance: TROPICAMIDE
     Indication: ASTIGMATISM
  2. MYDRIACYL [Suspect]
     Active Substance: TROPICAMIDE
     Indication: MYDRIASIS
     Dosage: UNK
     Route: 065
     Dates: start: 2017
  3. MYDRIACYL [Suspect]
     Active Substance: TROPICAMIDE
     Indication: OPEN ANGLE GLAUCOMA

REACTIONS (3)
  - Syncope [Recovered/Resolved]
  - Loss of consciousness [Recovered/Resolved]
  - Fall [Recovered/Resolved]

NARRATIVE: CASE EVENT DATE: 2017
